FAERS Safety Report 4684220-7 (Version None)
Quarter: 2005Q2

REPORT INFORMATION
  Report Type: 
  Country: None (occurrence: None)
  Receive Date: 20050531
  Receipt Date: 20050315
  Transmission Date: 20051028
  Serious: Yes (Other)
  Sender: FDA-Public Use
  Company Number: 200511273US

PATIENT
  Age: 47 Year
  Sex: Male

DRUGS (3)
  1. LOVENOX [Suspect]
     Indication: HIP SURGERY
     Dosage: 30 MG Q12H; 40 MG QD
  2. LOVENOX [Suspect]
     Indication: HIP SURGERY
     Dosage: 30 MG Q12H; 40 MG QD
  3. . [Concomitant]

REACTIONS (1)
  - PULMONARY EMBOLISM [None]
